FAERS Safety Report 14022002 (Version 1)
Quarter: 2017Q3

REPORT INFORMATION
  Report Type: Spontaneous
  Country: CA (occurrence: CA)
  Receive Date: 20170928
  Receipt Date: 20170928
  Transmission Date: 20171128
  Serious: Yes (Hospitalization)
  Sender: FDA-Public Use
  Company Number: CA-PFIZER INC-2017412815

PATIENT
  Age: 15 Year
  Sex: Female

DRUGS (2)
  1. MULTIVITAMINS /00116001/ [Concomitant]
     Active Substance: VITAMINS
     Dosage: UNK
  2. GENOTROPIN [Suspect]
     Active Substance: SOMATROPIN
     Indication: GROWTH RETARDATION
     Dosage: 1.2 MG, DAILY
     Route: 058
     Dates: start: 20150825

REACTIONS (2)
  - Appendix disorder [Unknown]
  - Abdominal pain [Unknown]
